FAERS Safety Report 6832107-3 (Version None)
Quarter: 2010Q3

REPORT INFORMATION
  Report Type: 
  Country: None (occurrence: None)
  Receive Date: 20100712
  Receipt Date: 20100709
  Transmission Date: 20110219
  Serious: Yes (Life-Threatening)
  Sender: FDA-Public Use
  Company Number: MY-ROCHE-714460

PATIENT
  Sex: Male
  Weight: 74.8 kg

DRUGS (6)
  1. MIRCERA [Suspect]
     Indication: ANAEMIA
     Route: 058
     Dates: start: 20100622, end: 20100623
  2. AMLODIPINE [Concomitant]
     Indication: HYPERTENSION
     Route: 048
     Dates: start: 20100622
  3. CACO3 [Concomitant]
     Route: 048
     Dates: start: 20100622
  4. FERROUS FUMARATE [Concomitant]
     Route: 048
     Dates: start: 20100622
  5. FUROSEMIDE [Concomitant]
     Indication: DIURETIC THERAPY
     Route: 048
     Dates: start: 20100622
  6. ONE-ALPHA [Concomitant]
     Route: 048
     Dates: start: 20100622

REACTIONS (3)
  - FALL [None]
  - HYPERSENSITIVITY [None]
  - HYPOTENSION [None]
